FAERS Safety Report 25780267 (Version 1)
Quarter: 2025Q3

REPORT INFORMATION
  Report Type: Spontaneous
  Country: US (occurrence: US)
  Receive Date: 20250909
  Receipt Date: 20250909
  Transmission Date: 20251020
  Serious: No
  Sender: SANOFI AVENTIS
  Company Number: US-SANOFI-02643455

PATIENT
  Age: 75 Year
  Sex: Female

DRUGS (1)
  1. LANTUS SOLOSTAR [Suspect]
     Active Substance: INSULIN GLARGINE
     Indication: Diabetes mellitus
     Dosage: 94 U, BID (DIALS 80 UNITS FIRST, THEN DIALS 14 UNITS AFTER TO TAKE THE WHOLE 94 UNITS AT ONCE)

REACTIONS (1)
  - Off label use [Unknown]
